FAERS Safety Report 20764460 (Version 1)
Quarter: 2022Q2

REPORT INFORMATION
  Report Type: Spontaneous
  Country: DK (occurrence: DK)
  Receive Date: 20220428
  Receipt Date: 20220428
  Transmission Date: 20220721
  Serious: Yes (Disabling)
  Sender: FDA-Public Use
  Company Number: None

PATIENT
  Age: 70 Year
  Sex: Male
  Weight: 75 kg

DRUGS (1)
  1. ELIQUIS [Suspect]
     Active Substance: APIXABAN
     Indication: Product used for unknown indication
     Dosage: STRENGTH: 5 MG
     Route: 048
     Dates: start: 20210501, end: 20220322

REACTIONS (6)
  - Peripheral swelling [Recovering/Resolving]
  - Sensory disturbance [Recovering/Resolving]
  - Cyanosis [Recovering/Resolving]
  - Pain in extremity [Recovering/Resolving]
  - Onychomycosis [Recovering/Resolving]
  - Hyperaemia [Recovering/Resolving]

NARRATIVE: CASE EVENT DATE: 20210501
